FAERS Safety Report 24145775 (Version 4)
Quarter: 2025Q2

REPORT INFORMATION
  Report Type: Report from Study
  Country: BR (occurrence: BR)
  Receive Date: 20240729
  Receipt Date: 20250605
  Transmission Date: 20250716
  Serious: Yes (Other)
  Sender: AMGEN
  Company Number: BR-AMGEN-BRASL2024034417

PATIENT
  Age: 89 Year
  Sex: Female

DRUGS (9)
  1. VECTIBIX [Suspect]
     Active Substance: PANITUMUMAB
     Indication: Colorectal cancer metastatic
     Route: 042
     Dates: start: 20230814, end: 202406
  2. VECTIBIX [Suspect]
     Active Substance: PANITUMUMAB
     Route: 042
     Dates: start: 20250129
  3. Diamicron [Concomitant]
     Dosage: UNK UNK, QD, 1 TABLET A DAY.
  4. METFORMIN HYDROCHLORIDE [Concomitant]
     Active Substance: METFORMIN HYDROCHLORIDE
     Dosage: 1 GRAM, QD
  5. Nitrendipino [Concomitant]
     Dosage: 1 DOSAGE FORM, Q12H
  6. GLIFAGE [Concomitant]
     Active Substance: METFORMIN HYDROCHLORIDE
     Dosage: 1 GRAM, QD,  TABLET A DAY.
  7. NITRENDIPINE [Concomitant]
     Active Substance: NITRENDIPINE
     Indication: Acne
     Dosage: 10 MILLIGRAM, Q12H, 1 TABLET EVERY 12 HOURS
  8. PURAN [Concomitant]
     Active Substance: LEVOTHYROXINE SODIUM
     Dosage: 1 DOSAGE FORM, QD
  9. Hyabak [Concomitant]
     Indication: Conjunctivitis

REACTIONS (9)
  - Adverse drug reaction [Not Recovered/Not Resolved]
  - Colorectal cancer metastatic [Recovering/Resolving]
  - Wound [Recovering/Resolving]
  - Nasal dryness [Recovering/Resolving]
  - Dermatitis acneiform [Recovering/Resolving]
  - Conjunctivitis [Recovering/Resolving]
  - Dry mouth [Recovering/Resolving]
  - Dry skin [Recovering/Resolving]
  - Dry eye [Recovering/Resolving]
